FAERS Safety Report 6439155-6 (Version None)
Quarter: 2009Q4

REPORT INFORMATION
  Report Type: 
  Country: None (occurrence: None)
  Receive Date: 20091113
  Receipt Date: 20091110
  Transmission Date: 20100525
  Serious: Yes (Hospitalization, Other)
  Sender: FDA-Public Use
  Company Number: US-BRISTOL-MYERS SQUIBB COMPANY-14851166

PATIENT
  Sex: Female

DRUGS (1)
  1. COUMADIN [Suspect]
     Indication: CARDIAC DISORDER
     Dosage: DOSE DECREASED TO 9MG THEN 8MG/6MG.
     Dates: start: 19980101

REACTIONS (15)
  - ANKYLOSING SPONDYLITIS [None]
  - BRONCHITIS [None]
  - DIVERTICULUM [None]
  - DYSPHAGIA [None]
  - EPISTAXIS [None]
  - HAEMOPTYSIS [None]
  - HAEMORRHAGE SUBCUTANEOUS [None]
  - OEDEMA PERIPHERAL [None]
  - OSTEOPOROSIS [None]
  - PANIC ATTACK [None]
  - RECTAL HAEMORRHAGE [None]
  - RESPIRATORY FAILURE [None]
  - THROMBOSIS [None]
  - TOOTH DISORDER [None]
  - WEIGHT INCREASED [None]
